FAERS Safety Report 7987676-7 (Version None)
Quarter: 2011Q4

REPORT INFORMATION
  Report Type: 
  Country: None (occurrence: None)
  Receive Date: 20111216
  Receipt Date: 20111216
  Transmission Date: 20120403
  Serious: No
  Sender: FDA-Public Use
  Company Number: US-BRISTOL-MYERS SQUIBB COMPANY-15347024

PATIENT
  Age: 54 Year
  Sex: Female

DRUGS (4)
  1. RISPERDAL [Suspect]
     Dates: start: 20050101
  2. LITHIUM CARBONATE [Suspect]
  3. ABILIFY [Suspect]
     Indication: BIPOLAR I DISORDER
     Route: 048
     Dates: start: 20090606
  4. CLONAZEPAM [Suspect]

REACTIONS (2)
  - TARDIVE DYSKINESIA [None]
  - TREMOR [None]
